FAERS Safety Report 19594458 (Version 2)
Quarter: 2021Q3

REPORT INFORMATION
  Report Type: Spontaneous
  Country: US (occurrence: US)
  Receive Date: 20210722
  Receipt Date: 20210913
  Transmission Date: 20211014
  Serious: No
  Sender: FDA-Public Use
  Company Number: US-SA-2021SA238303

PATIENT
  Age: 24 Year
  Sex: Female

DRUGS (13)
  1. PROPANOLOL [PROPRANOLOL] [Concomitant]
     Active Substance: PROPRANOLOL HYDROCHLORIDE
  2. LOSARTAN POTASSIUM. [Concomitant]
     Active Substance: LOSARTAN POTASSIUM
  3. PREDNISOLONE. [Concomitant]
     Active Substance: PREDNISOLONE
  4. CITRIC ACID [Concomitant]
     Active Substance: CITRIC ACID MONOHYDRATE
  5. PRAZOSIN. [Concomitant]
     Active Substance: PRAZOSIN
  6. VENLAFAXINE [Concomitant]
     Active Substance: VENLAFAXINE HYDROCHLORIDE
  7. TRI?SPRINTEC [Concomitant]
     Active Substance: ETHINYL ESTRADIOL\NORGESTIMATE
  8. DUPIXENT [Suspect]
     Active Substance: DUPILUMAB
     Indication: DERMATITIS ATOPIC
     Dosage: 300 MG, QOW
     Route: 058
     Dates: start: 20210112
  9. BUSPIRONE [Concomitant]
     Active Substance: BUSPIRONE HYDROCHLORIDE
  10. PIROXICAM. [Concomitant]
     Active Substance: PIROXICAM
  11. QUETIAPINE. [Concomitant]
     Active Substance: QUETIAPINE
  12. TRAMADOL. [Concomitant]
     Active Substance: TRAMADOL
  13. DIVALPROEX [Concomitant]
     Active Substance: DIVALPROEX SODIUM

REACTIONS (3)
  - Rash [Not Recovered/Not Resolved]
  - Dermatitis atopic [Not Recovered/Not Resolved]
  - Product dose omission issue [Unknown]

NARRATIVE: CASE EVENT DATE: 2021
